FAERS Safety Report 5924517-3 (Version None)
Quarter: 2008Q4

REPORT INFORMATION
  Report Type: 
  Country: None (occurrence: None)
  Receive Date: 20081020
  Receipt Date: 20081010
  Transmission Date: 20090506
  Serious: Yes (Hospitalization)
  Sender: FDA-Public Use
  Company Number: US-AMGEN-QUU312846

PATIENT
  Sex: Male

DRUGS (10)
  1. ENBREL [Suspect]
     Indication: PSORIASIS
     Dates: start: 20070101
  2. SORBITOL [Concomitant]
  3. LISINOPRIL [Concomitant]
  4. METFORMIN HYDROCHLORIDE [Concomitant]
  5. CRESTOR [Concomitant]
  6. CELEBREX [Concomitant]
  7. NEXIUM [Concomitant]
  8. JANUVIA [Concomitant]
  9. WARFARIN SODIUM [Concomitant]
  10. ACTOS [Concomitant]

REACTIONS (2)
  - CARDIAC DISORDER [None]
  - INFLUENZA LIKE ILLNESS [None]
